FAERS Safety Report 8602958-3 (Version None)
Quarter: 2012Q3

REPORT INFORMATION
  Report Type: 
  Country: None (occurrence: None)
  Receive Date: 20120817
  Receipt Date: 20120815
  Transmission Date: 20120928
  Serious: Yes (Hospitalization)
  Sender: FDA-Public Use
  Company Number: CA-BRISTOL-MYERS SQUIBB COMPANY-16695355

PATIENT
  Age: 62 Year
  Sex: Female
  Weight: 71 kg

DRUGS (7)
  1. POTASSIUM [Concomitant]
     Dosage: ORAL.IV ROUTES
  2. RIBAVIRIN [Suspect]
     Indication: HEPATITIS C
     Route: 048
     Dates: start: 20120523
  3. IRBESARTAN [Suspect]
     Dates: start: 20090715
  4. HYDROCHLOROTHIAZIDE [Suspect]
     Dates: start: 20090715
  5. ADVIL [Concomitant]
     Dates: start: 20120524
  6. PEGINTERFERON ALFA-2A [Suspect]
     Indication: HEPATITIS C
     Dosage: 1DF=180UG
     Route: 058
     Dates: start: 20120523
  7. DACLATASVIR [Suspect]
     Indication: HEPATITIS C
     Route: 048
     Dates: start: 20120523

REACTIONS (3)
  - HYPOKALAEMIA [None]
  - SYNCOPE [None]
  - CONCUSSION [None]
